FAERS Safety Report 5918173-8 (Version None)
Quarter: 2008Q4

REPORT INFORMATION
  Report Type: 
  Country: None (occurrence: None)
  Receive Date: 20081014
  Receipt Date: 20081008
  Transmission Date: 20090506
  Serious: Yes (Hospitalization)
  Sender: FDA-Public Use
  Company Number: JP-ABBOTT-08P-087-0469181-00

PATIENT
  Sex: Male

DRUGS (5)
  1. SEVOFRANE LIQUID FOR INHALATION 5% CONTINUOUS USE [Suspect]
     Indication: ASTHMA
     Route: 055
     Dates: start: 20080118, end: 20080120
  2. AMINOPHYLLINE HYDRATE [Concomitant]
     Indication: DRUG USE FOR UNKNOWN INDICATION
     Route: 042
     Dates: start: 20080117, end: 20080130
  3. HYDROCORTISONE [Concomitant]
     Indication: DRUG USE FOR UNKNOWN INDICATION
     Route: 042
     Dates: start: 20080117, end: 20080120
  4. PROPOFOL [Concomitant]
     Indication: DRUG USE FOR UNKNOWN INDICATION
     Dosage: 20ML/HR
     Dates: start: 20080118, end: 20080120
  5. RANITIDINE [Concomitant]
     Indication: DRUG USE FOR UNKNOWN INDICATION
     Dates: start: 20080117, end: 20080130

REACTIONS (2)
  - EYE MOVEMENT DISORDER [None]
  - REVERSIBLE POSTERIOR LEUKOENCEPHALOPATHY SYNDROME [None]
